FAERS Safety Report 5698029-9 (Version None)
Quarter: 2008Q2

REPORT INFORMATION
  Report Type: 
  Country: None (occurrence: None)
  Receive Date: 20080404
  Receipt Date: 20080404
  Transmission Date: 20081010
  Serious: Yes (Other)
  Sender: FDA-Public Use
  Company Number: None

PATIENT
  Sex: Female
  Weight: 72.5755 kg

DRUGS (2)
  1. MIRENA [Suspect]
     Indication: CONTRACEPTION
     Dates: start: 20080304, end: 20080403
  2. MIRENA [Suspect]
     Indication: MENORRHAGIA
     Dates: start: 20080304, end: 20080403

REACTIONS (5)
  - ABDOMINAL PAIN [None]
  - BACK PAIN [None]
  - HAEMORRHAGE [None]
  - NAUSEA [None]
  - PAIN [None]
